FAERS Safety Report 4316221-2 (Version None)
Quarter: 2004Q1

REPORT INFORMATION
  Report Type: 
  Country: None (occurrence: None)
  Receive Date: 20040312
  Receipt Date: 20040308
  Transmission Date: 20041129
  Serious: Yes (Hospitalization)
  Sender: FDA-Public Use
  Company Number: WAES 0403GBR00082

PATIENT
  Age: 90 Year

DRUGS (6)
  1. ACETAZOLAMIDE [Concomitant]
     Route: 048
  2. AMLODIPINE BESYLATE [Concomitant]
     Route: 048
  3. ASPIRIN [Concomitant]
     Route: 048
  4. PROSCAR [Concomitant]
     Route: 048
  5. VIOXX [Suspect]
     Indication: BACK PAIN
     Route: 048
     Dates: start: 20040108, end: 20040203
  6. ZOCOR [Concomitant]
     Route: 048

REACTIONS (4)
  - ANOREXIA [None]
  - HEPATITIS [None]
  - JAUNDICE [None]
  - WEIGHT DECREASED [None]
